FAERS Safety Report 5750175-7 (Version None)
Quarter: 2008Q2

REPORT INFORMATION
  Report Type: 
  Country: None (occurrence: None)
  Receive Date: 20080527
  Receipt Date: 20080514
  Transmission Date: 20081010
  Serious: Yes (Hospitalization, Other)
  Sender: FDA-Public Use
  Company Number: CA-ELI_LILLY_AND_COMPANY-CA200804006768

PATIENT
  Sex: Female

DRUGS (4)
  1. FORTEO [Suspect]
     Indication: OSTEOPOROSIS
     Dosage: 20 UG, DAILY (1/D)
     Route: 058
     Dates: start: 20080402, end: 20080401
  2. PREDNISONE TAB [Concomitant]
  3. CALCIUM                                 /N/A/ [Concomitant]
  4. TYLENOL                                 /SCH/ [Concomitant]

REACTIONS (4)
  - DIZZINESS [None]
  - MEAN CELL HAEMOGLOBIN DECREASED [None]
  - MICROCYTOSIS [None]
  - NEUTROPENIA [None]
